FAERS Safety Report 7383647-2 (Version None)
Quarter: 2011Q1

REPORT INFORMATION
  Report Type: 
  Country: None (occurrence: None)
  Receive Date: 20110330
  Receipt Date: 20101015
  Transmission Date: 20110831
  Serious: Yes (Hospitalization)
  Sender: FDA-Public Use
  Company Number: US-BAYER-201021496NA

PATIENT
  Sex: Female
  Weight: 81.633 kg

DRUGS (10)
  1. FEXOFENADINE [Concomitant]
     Indication: MULTIPLE ALLERGIES
     Dosage: 180 MG, QD
     Route: 048
     Dates: start: 20040101
  2. PATANOL [Concomitant]
     Dosage: UNK
     Route: 047
     Dates: start: 20070401, end: 20070501
  3. ZYRTEC [Concomitant]
     Dosage: 10 MG, UNK
     Route: 048
     Dates: start: 20060801, end: 20070401
  4. HERBAL PREPARATION [Concomitant]
  5. NSAID'S [Concomitant]
  6. NASONEX [Concomitant]
     Indication: MULTIPLE ALLERGIES
     Dosage: 50 ?G, UNK
  7. YAZ [Suspect]
     Indication: ACNE
     Dosage: UNK UNK, QD
     Route: 048
     Dates: start: 20070201, end: 20070501
  8. EPIPEN [Concomitant]
     Dosage: UNK
     Route: 030
     Dates: start: 20070401, end: 20070401
  9. MINOCYCLINE [Concomitant]
     Dosage: 50 MG, BID
  10. RHINOCORT [Concomitant]
     Dosage: UNK
     Route: 045
     Dates: start: 20060801, end: 20070401

REACTIONS (6)
  - RESPIRATORY DEPTH DECREASED [None]
  - PULMONARY EMBOLISM [None]
  - PLEURITIC PAIN [None]
  - DYSPNOEA [None]
  - PAIN IN EXTREMITY [None]
  - DEEP VEIN THROMBOSIS [None]
